FAERS Safety Report 14058173 (Version 1)
Quarter: 2017Q4

REPORT INFORMATION
  Report Type: Spontaneous
  Country: BR (occurrence: BR)
  Receive Date: 20171006
  Receipt Date: 20171006
  Transmission Date: 20180321
  Serious: Yes (Other)
  Sender: FDA-Public Use
  Company Number: BR-ABBVIE-17K-020-2119734-00

PATIENT
  Age: 38 Year
  Sex: Female

DRUGS (4)
  1. HUMIRA [Suspect]
     Active Substance: ADALIMUMAB
     Route: 058
     Dates: start: 201706
  2. MESALAZINE [Concomitant]
     Active Substance: MESALAMINE
     Indication: PRODUCT USED FOR UNKNOWN INDICATION
  3. HUMIRA [Suspect]
     Active Substance: ADALIMUMAB
     Indication: CROHN^S DISEASE
     Route: 058
     Dates: start: 2011
  4. AZATHIOPRINE. [Concomitant]
     Active Substance: AZATHIOPRINE
     Indication: PRODUCT USED FOR UNKNOWN INDICATION
     Dates: start: 2012, end: 201407

REACTIONS (14)
  - Premature delivery [Unknown]
  - Nausea [Unknown]
  - Dermatitis [Unknown]
  - Nasal herpes [Unknown]
  - Abdominal distension [Unknown]
  - Gestational hypertension [Unknown]
  - Subcutaneous abscess [Unknown]
  - Vomiting [Unknown]
  - Exposure during pregnancy [Unknown]
  - Thrombocytosis [Unknown]
  - Abdominal pain [Unknown]
  - Thrombocytosis [Unknown]
  - Gastrointestinal wall thickening [Unknown]
  - Oral herpes [Unknown]

NARRATIVE: CASE EVENT DATE: 2011
